FAERS Safety Report 7568999-2 (Version None)
Quarter: 2011Q2

REPORT INFORMATION
  Report Type: 
  Country: None (occurrence: None)
  Receive Date: 20110623
  Receipt Date: 20110617
  Transmission Date: 20111010
  Serious: Yes (Other)
  Sender: FDA-Public Use
  Company Number: FR-PFIZER INC-2011133226

PATIENT
  Age: 63 Year
  Sex: Male

DRUGS (5)
  1. MAGNESIUM SULFATE [Concomitant]
     Dosage: 1.5 G, UNK
     Dates: start: 20100615
  2. OXALIPLATIN [Concomitant]
     Dosage: 170 MG, UNK
     Dates: start: 20100615
  3. SOLU-MEDROL [Suspect]
     Dosage: 120 MG, UNK
     Route: 042
     Dates: start: 20100615
  4. ONDANSERTRON HYDROCHLORIDE [Concomitant]
     Dosage: 8 MG, UNK
     Dates: start: 20100615
  5. CALCIUM GLUCONATE [Concomitant]
     Dosage: 1 G, UNK
     Dates: start: 20100615

REACTIONS (1)
  - THROMBOCYTOPENIA [None]
